FAERS Safety Report 25368722 (Version 2)
Quarter: 2025Q2

REPORT INFORMATION
  Report Type: Spontaneous
  Country: JP (occurrence: JP)
  Receive Date: 20250528
  Receipt Date: 20250605
  Transmission Date: 20250716
  Serious: Yes (Hospitalization, Other)
  Sender: OTSUKA
  Company Number: JP-MMM-Otsuka-PYOG26BI

PATIENT
  Age: 85 Year
  Sex: Male

DRUGS (10)
  1. REXULTI [Suspect]
     Active Substance: BREXPIPRAZOLE
     Indication: Dementia Alzheimer^s type
     Route: 065
  2. REXULTI [Suspect]
     Active Substance: BREXPIPRAZOLE
     Indication: Neuropsychological symptoms
  3. MEMANTINE HYDROCHLORIDE [Suspect]
     Active Substance: MEMANTINE HYDROCHLORIDE
     Indication: Dementia Alzheimer^s type
     Route: 048
  4. MEMANTINE HYDROCHLORIDE [Suspect]
     Active Substance: MEMANTINE HYDROCHLORIDE
     Indication: Neuropsychological symptoms
     Route: 048
  5. LEMBOREXANT [Suspect]
     Active Substance: LEMBOREXANT
     Indication: Dementia Alzheimer^s type
     Route: 048
  6. LEMBOREXANT [Suspect]
     Active Substance: LEMBOREXANT
     Indication: Neuropsychological symptoms
     Route: 048
  7. ESZOPICLONE [Suspect]
     Active Substance: ESZOPICLONE
     Indication: Dementia Alzheimer^s type
     Route: 065
  8. ESZOPICLONE [Suspect]
     Active Substance: ESZOPICLONE
     Indication: Neuropsychological symptoms
  9. RISPERIDONE [Suspect]
     Active Substance: RISPERIDONE
     Indication: Dementia Alzheimer^s type
     Route: 065
  10. RISPERIDONE [Suspect]
     Active Substance: RISPERIDONE
     Indication: Neuropsychological symptoms

REACTIONS (4)
  - Hydronephrosis [Recovering/Resolving]
  - Pneumonia [Recovering/Resolving]
  - Urinary retention [Unknown]
  - Somnolence [Unknown]
